FAERS Safety Report 19398522 (Version 1)
Quarter: 2021Q2

REPORT INFORMATION
  Report Type: Spontaneous
  Country: US (occurrence: US)
  Receive Date: 20210609
  Receipt Date: 20210609
  Transmission Date: 20210717
  Serious: No
  Sender: FDA-Public Use
  Company Number: None

PATIENT
  Sex: Female

DRUGS (1)
  1. HUMIRA [Suspect]
     Active Substance: ADALIMUMAB
     Indication: COLITIS ULCERATIVE
     Dosage: INJECT 2 PENS UNDER THE SKIN ON DAY , THEN  PEN ON DAY 15
     Route: 058
     Dates: start: 202105

REACTIONS (1)
  - Drug ineffective [None]
